FAERS Safety Report 8391937-X (Version None)
Quarter: 2012Q2

REPORT INFORMATION
  Report Type: 
  Country: None (occurrence: None)
  Receive Date: 20120529
  Receipt Date: 20120519
  Transmission Date: 20120825
  Serious: Yes (Other)
  Sender: FDA-Public Use
  Company Number: JP-GLAXOSMITHKLINE-B0803316A

PATIENT
  Age: 70 Year
  Sex: Male

DRUGS (1)
  1. FLUTICASONE PROPIONATE/SALMETEROL [Suspect]
     Indication: CHRONIC OBSTRUCTIVE PULMONARY DISEASE
     Dosage: 500MCG PER DAY
     Route: 055
     Dates: start: 20120301, end: 20120517

REACTIONS (2)
  - ABDOMINAL DISCOMFORT [None]
  - OESOPHAGEAL CANDIDIASIS [None]
